FAERS Safety Report 6236751-6 (Version None)
Quarter: 2009Q2

REPORT INFORMATION
  Report Type: 
  Country: None (occurrence: None)
  Receive Date: 20090619
  Receipt Date: 20090610
  Transmission Date: 20091009
  Serious: Yes (Other)
  Sender: FDA-Public Use
  Company Number: PHHY2009CA22996

PATIENT
  Sex: Male

DRUGS (1)
  1. ZOMETA [Suspect]
     Indication: PROSTATE CANCER
     Dosage: 4 MG, QMO
     Route: 042
     Dates: start: 20090218, end: 20090318

REACTIONS (4)
  - OSTEONECROSIS [None]
  - TONGUE ULCERATION [None]
  - TOOTH ABSCESS [None]
  - TOOTHACHE [None]
